FAERS Safety Report 4408290-6 (Version None)
Quarter: 2004Q3

REPORT INFORMATION
  Report Type: 
  Country: None (occurrence: None)
  Receive Date: 20040722
  Receipt Date: 20040707
  Transmission Date: 20050211
  Serious: Yes (Other)
  Sender: FDA-Public Use
  Company Number: S04-UKI-02859-01

PATIENT
  Age: 38 Year
  Sex: Female

DRUGS (2)
  1. CIPRALEX (ESCITALOPRAM) [Suspect]
     Indication: DEPRESSION
     Dosage: 10 MG QD PO
     Route: 048
     Dates: start: 20040527, end: 20040610
  2. ZOPICLONE [Concomitant]

REACTIONS (4)
  - ANOREXIA [None]
  - HYPERHIDROSIS [None]
  - HYPOAESTHESIA [None]
  - LETHARGY [None]
